FAERS Safety Report 5786716-3 (Version None)
Quarter: 2008Q2

REPORT INFORMATION
  Report Type: 
  Country: None (occurrence: None)
  Receive Date: 20080624
  Receipt Date: 20080617
  Transmission Date: 20081010
  Serious: Yes (Death, Other)
  Sender: FDA-Public Use
  Company Number: US-BAXTER-2008BH005877

PATIENT
  Age: 79 Year
  Sex: Female

DRUGS (7)
  1. HEPARIN SODIUM 5,000 UNITS IN DEXTROSE 5% [Suspect]
     Indication: COAGULOPATHY
     Dosage: DOSE UNIT:UNKNOWN
     Route: 042
     Dates: start: 20080310
  2. HEPARIN [Suspect]
     Indication: COAGULOPATHY
     Dosage: DOSE UNIT:UNKNOWN
     Route: 065
     Dates: start: 20080310
  3. PLAVIX [Concomitant]
     Indication: DRUG USE FOR UNKNOWN INDICATION
     Dosage: DOSE UNIT:UNKNOWN
     Route: 065
     Dates: end: 20080310
  4. ZOCOR [Concomitant]
     Indication: DRUG USE FOR UNKNOWN INDICATION
     Dosage: DOSE UNIT:UNKNOWN
     Route: 065
  5. LOVENOX [Concomitant]
     Indication: DRUG USE FOR UNKNOWN INDICATION
     Dosage: DOSE UNIT:UNKNOWN
     Route: 065
  6. NEXIUM [Concomitant]
     Indication: DRUG USE FOR UNKNOWN INDICATION
     Dosage: DOSE UNIT:UNKNOWN
     Route: 065
  7. MOTRIN [Concomitant]
     Indication: HEADACHE
     Dosage: DOSE UNIT:UNKNOWN
     Route: 065

REACTIONS (13)
  - ASTHENIA [None]
  - BACK PAIN [None]
  - BLOOD URINE PRESENT [None]
  - CEREBRAL HAEMORRHAGE [None]
  - COLD SWEAT [None]
  - DEATH [None]
  - FEELING HOT [None]
  - INJECTION SITE ERYTHEMA [None]
  - INJECTION SITE RASH [None]
  - INJECTION SITE SWELLING [None]
  - RESTLESSNESS [None]
  - UNRESPONSIVE TO STIMULI [None]
  - VOMITING [None]
